FAERS Safety Report 23865475 (Version 2)
Quarter: 2024Q2

REPORT INFORMATION
  Report Type: Spontaneous
  Country: US (occurrence: US)
  Receive Date: 20240517
  Receipt Date: 20240603
  Transmission Date: 20240715
  Serious: No
  Sender: FDA-Public Use
  Company Number: US-APOTEX-2024AP005373

PATIENT

DRUGS (1)
  1. IPRATROPIUM BROMIDE [Suspect]
     Active Substance: IPRATROPIUM BROMIDE\IPRATROPIUM BROMIDE ANHYDROUS
     Indication: Product used for unknown indication
     Dosage: 2 DOSAGE FORM, 3-4 TIMES A DAY
     Route: 045
     Dates: start: 2024

REACTIONS (4)
  - Incorrect dose administered by device [Unknown]
  - Product delivery mechanism issue [Unknown]
  - Device calibration failure [Unknown]
  - Product design issue [Unknown]

NARRATIVE: CASE EVENT DATE: 20240101
